FAERS Safety Report 19906583 (Version 4)
Quarter: 2021Q4

REPORT INFORMATION
  Report Type: Spontaneous
  Country: US (occurrence: None)
  Receive Date: 20210930
  Receipt Date: 20211223
  Transmission Date: 20220303
  Serious: No
  Sender: FDA-Public Use
  Company Number: 2021A746443

PATIENT
  Age: 891 Month
  Sex: Female
  Weight: 96.2 kg

DRUGS (4)
  1. BYDUREON BCISE [Suspect]
     Active Substance: EXENATIDE
     Indication: Blood glucose fluctuation
     Route: 058
     Dates: start: 2019
  2. BYDUREON BCISE [Suspect]
     Active Substance: EXENATIDE
     Indication: Type 2 diabetes mellitus
     Route: 058
     Dates: start: 2019
  3. LANTUS [Concomitant]
     Active Substance: INSULIN GLARGINE
     Indication: Diabetes mellitus
     Dosage: 32 UNITS DAILY
     Route: 065
  4. LANTUS [Concomitant]
     Active Substance: INSULIN GLARGINE
     Indication: Diabetes mellitus
     Dosage: 36 UNITS DAILY
     Route: 065

REACTIONS (4)
  - Blood glucose increased [Recovered/Resolved]
  - Wrong technique in product usage process [Unknown]
  - Drug delivery system malfunction [Unknown]
  - Multiple use of single-use product [Unknown]

NARRATIVE: CASE EVENT DATE: 20210801
